FAERS Safety Report 4331363-3 (Version None)
Quarter: 2004Q1

REPORT INFORMATION
  Report Type: 
  Country: None (occurrence: None)
  Receive Date: 20040329
  Receipt Date: 20040315
  Transmission Date: 20041129
  Serious: Yes (Hospitalization)
  Sender: FDA-Public Use
  Company Number: 04P-163-0253312-00

PATIENT
  Age: 76 Year
  Sex: Male
  Weight: 104.3273 kg

DRUGS (7)
  1. TRICOR [Suspect]
     Indication: BLOOD CHOLESTEROL
     Dosage: 160 MG, 1 IN 1 D, PER ORAL
     Route: 048
     Dates: start: 20040303, end: 20040307
  2. ZOCOR [Suspect]
     Indication: BLOOD CHOLESTEROL
     Dosage: 20 MG, 1 IN 1 D, PER ORAL
     Route: 048
     Dates: end: 20040306
  3. CLOPIDOGREL BISULFATE [Concomitant]
  4. CIBADREX [Concomitant]
  5. CARVEDILOL [Concomitant]
  6. GLIMEPIRIDE [Concomitant]
  7. ASPIRIN [Concomitant]

REACTIONS (5)
  - APNOEA [None]
  - LOSS OF CONSCIOUSNESS [None]
  - OEDEMA PERIPHERAL [None]
  - PAIN IN EXTREMITY [None]
  - SYNCOPE [None]
